FAERS Safety Report 5756820-4 (Version None)
Quarter: 2008Q2

REPORT INFORMATION
  Report Type: 
  Country: None (occurrence: None)
  Receive Date: 20080529
  Receipt Date: 20080516
  Transmission Date: 20081010
  Serious: Yes (Death, Other)
  Sender: FDA-Public Use
  Company Number: CERZ-12001

PATIENT
  Age: 74 Year
  Sex: Male
  Weight: 69.1 kg

DRUGS (9)
  1. CEREZYME [Suspect]
     Indication: GAUCHER'S DISEASE
     Dosage: 4600 U, Q4W, INTRAVENOUS; 3200 U, Q2W, INTRAVENOUS
     Route: 042
     Dates: end: 20071001
  2. CEREZYME [Suspect]
     Indication: GAUCHER'S DISEASE
     Dosage: 4600 U, Q4W, INTRAVENOUS; 3200 U, Q2W, INTRAVENOUS
     Route: 042
     Dates: start: 20021014
  3. NEXAVAR (SORAFENIB TOSILATE) [Suspect]
     Indication: HEPATIC NEOPLASM MALIGNANT
     Dosage: 200 MG, BID, ORAL; 400 MG, BID, ORAL
     Route: 048
     Dates: end: 20080101
  4. NEXAVAR (SORAFENIB TOSILATE) [Suspect]
     Indication: HEPATIC NEOPLASM MALIGNANT
     Dosage: 200 MG, BID, ORAL; 400 MG, BID, ORAL
     Route: 048
     Dates: start: 20071201
  5. FOSAMAX [Concomitant]
  6. ATENOLOL [Concomitant]
  7. MULTIVITAMIN [Concomitant]
  8. MILK THISTLE [Concomitant]
  9. WELCHOL [Concomitant]

REACTIONS (18)
  - ANOREXIA [None]
  - ATELECTASIS [None]
  - BLOOD URINE PRESENT [None]
  - DIARRHOEA [None]
  - FATIGUE [None]
  - HAEMATOCRIT DECREASED [None]
  - HAEMOGLOBIN DECREASED [None]
  - HEPATIC NEOPLASM MALIGNANT [None]
  - HYPERTENSION [None]
  - INTERNATIONAL NORMALISED RATIO INCREASED [None]
  - MALABSORPTION [None]
  - METASTASIS [None]
  - NAUSEA [None]
  - PORTAL VEIN OCCLUSION [None]
  - PROTEIN URINE PRESENT [None]
  - PYREXIA [None]
  - URINE BILIRUBIN INCREASED [None]
  - WEIGHT DECREASED [None]
